FAERS Safety Report 13933235 (Version 1)
Quarter: 2017Q3

REPORT INFORMATION
  Report Type: Spontaneous
  Country: DE (occurrence: DE)
  Receive Date: 20170904
  Receipt Date: 20170904
  Transmission Date: 20171127
  Serious: Yes (Death)
  Sender: FDA-Public Use
  Company Number: DE-B.I. PHARMACEUTICALS,INC./RIDGEFIELD-2017-BI-048458

PATIENT
  Age: 87 Year
  Sex: Male
  Weight: 80 kg

DRUGS (6)
  1. SERTRALINE [Concomitant]
     Active Substance: SERTRALINE HYDROCHLORIDE
     Indication: PRODUCT USED FOR UNKNOWN INDICATION
     Route: 065
  2. PRAXBIND [Suspect]
     Active Substance: IDARUCIZUMAB
     Indication: CHOLECYSTITIS ACUTE
     Route: 017
  3. TORASEMID [Concomitant]
     Active Substance: TORSEMIDE
     Indication: PRODUCT USED FOR UNKNOWN INDICATION
     Dosage: STRENGTH: 10
     Route: 065
  4. RAMIPRIL. [Concomitant]
     Active Substance: RAMIPRIL
     Indication: PRODUCT USED FOR UNKNOWN INDICATION
     Route: 065
  5. SPIROGAMMA [Concomitant]
     Indication: PRODUCT USED FOR UNKNOWN INDICATION
     Route: 065
  6. METOHEXAL-SUCC [Concomitant]
     Indication: PRODUCT USED FOR UNKNOWN INDICATION
     Dosage: METOHEXAL-SUCC 95
     Route: 065

REACTIONS (1)
  - Pulseless electrical activity [Fatal]
